FAERS Safety Report 12659318 (Version 1)
Quarter: 2016Q3

REPORT INFORMATION
  Report Type: Spontaneous
  Country: DE (occurrence: DE)
  Receive Date: 20160817
  Receipt Date: 20160817
  Transmission Date: 20161109
  Serious: Yes (Other)
  Sender: FDA-Public Use
  Company Number: DE-ASTELLAS-2016US031307

PATIENT
  Sex: Male

DRUGS (1)
  1. XTANDI [Suspect]
     Active Substance: ENZALUTAMIDE
     Indication: HORMONE-REFRACTORY PROSTATE CANCER
     Dosage: 4 CAPSULES, ONCE DAILY
     Route: 048
     Dates: start: 20160404, end: 20160510

REACTIONS (2)
  - Lacrimation increased [Recovered/Resolved]
  - Blindness unilateral [Recovered/Resolved]

NARRATIVE: CASE EVENT DATE: 20160503
